FAERS Safety Report 6091524-2 (Version None)
Quarter: 2009Q1

REPORT INFORMATION
  Report Type: 
  Country: None (occurrence: None)
  Receive Date: 20090225
  Receipt Date: 20090216
  Transmission Date: 20090719
  Serious: Yes (Other)
  Sender: FDA-Public Use
  Company Number: PHHY2008JP26575

PATIENT
  Age: 76 Year
  Sex: Male
  Weight: 40 kg

DRUGS (9)
  1. COMTAN [Suspect]
     Indication: DRUG EFFECT DECREASED
     Dosage: 50 MG, TID
     Route: 048
     Dates: start: 20081016, end: 20081023
  2. CABASER [Concomitant]
     Indication: PARKINSON'S DISEASE
     Dosage: UNK
     Route: 048
     Dates: start: 20001208
  3. CARBIDOPA + LEVODOPA [Concomitant]
     Indication: PARKINSON'S DISEASE
     Dosage: 500MG
     Route: 048
  4. CARBIDOPA + LEVODOPA [Concomitant]
     Dosage: 300 MG
     Route: 048
  5. SYMMETREL [Concomitant]
     Indication: PARKINSON'S DISEASE
     Dosage: 100 MG
     Route: 048
     Dates: start: 20040109
  6. ARTANE [Concomitant]
     Dosage: 2 MG
     Route: 048
  7. FAMOTIDINE [Concomitant]
     Indication: GASTRITIS
     Dosage: 20MG
     Route: 048
     Dates: start: 20081008
  8. TETRAMIDE [Concomitant]
     Indication: HALLUCINATION, VISUAL
     Dosage: 10MG
     Route: 048
     Dates: start: 20000329
  9. MAGNESIUM OXIDE [Concomitant]
     Indication: CONSTIPATION
     Dosage: 2G
     Route: 048
     Dates: start: 20001208

REACTIONS (8)
  - ALANINE AMINOTRANSFERASE INCREASED [None]
  - ASPARTATE AMINOTRANSFERASE INCREASED [None]
  - BLOOD LACTATE DEHYDROGENASE INCREASED [None]
  - FLUSHING [None]
  - GAMMA-GLUTAMYLTRANSFERASE INCREASED [None]
  - HEPATIC ENZYME ABNORMAL [None]
  - HYPERNATRAEMIA [None]
  - LIVER DISORDER [None]
